FAERS Safety Report 13498232 (Version 4)
Quarter: 2017Q4

REPORT INFORMATION
  Report Type: Spontaneous
  Country: US (occurrence: US)
  Receive Date: 20170428
  Receipt Date: 20171123
  Transmission Date: 20180320
  Serious: Yes (Hospitalization)
  Sender: FDA-Public Use
  Company Number: US-VIFOR (INTERNATIONAL) INC.-VIT-2017-04535

PATIENT
  Sex: Male
  Weight: 65.97 kg

DRUGS (9)
  1. HEPARIN [Concomitant]
     Active Substance: HEPARIN SODIUM
     Indication: THROMBOSIS PROPHYLAXIS
  2. VELTASSA [Suspect]
     Active Substance: PATIROMER
     Indication: HYPERKALAEMIA
     Route: 048
     Dates: start: 20170201
  3. SODIUM BICARBONATE. [Concomitant]
     Active Substance: SODIUM BICARBONATE
  4. LASIX [Concomitant]
     Active Substance: FUROSEMIDE
     Route: 048
  5. HYDRALAZINE [Concomitant]
     Active Substance: HYDRALAZINE HYDROCHLORIDE
  6. AMLODIPINE [Concomitant]
     Active Substance: AMLODIPINE BESYLATE
     Route: 048
  7. HYDRALAZINE [Concomitant]
     Active Substance: HYDRALAZINE HYDROCHLORIDE
     Dosage: 25 MG IN THE MORNING AND 50 MG AT NIGHT
     Route: 048
  8. AMLODIPINE [Concomitant]
     Active Substance: AMLODIPINE BESYLATE
     Route: 048
  9. LASIX [Concomitant]
     Active Substance: FUROSEMIDE
     Route: 048

REACTIONS (20)
  - Hiccups [Recovered/Resolved]
  - Gastrointestinal oedema [Unknown]
  - Nausea [Recovered/Resolved]
  - Azotaemia [Unknown]
  - Pain in extremity [Unknown]
  - Abdominal rigidity [Unknown]
  - Pancreatitis acute [Unknown]
  - Dehydration [Recovered/Resolved]
  - Abdominal pain upper [Unknown]
  - Renal cyst [Unknown]
  - Vomiting [Recovered/Resolved]
  - Skin warm [Unknown]
  - Dry skin [Unknown]
  - Hyperparathyroidism [Unknown]
  - Leukocytosis [Unknown]
  - Insomnia [Unknown]
  - Glossodynia [Unknown]
  - Tachycardia [Unknown]
  - Hyperlipasaemia [Recovering/Resolving]
  - Tenderness [Unknown]

NARRATIVE: CASE EVENT DATE: 2017
